FAERS Safety Report 11142028 (Version 1)
Quarter: 2015Q2

REPORT INFORMATION
  Report Type: Spontaneous
  Country: GB (occurrence: GB)
  Receive Date: 20150527
  Receipt Date: 20150527
  Transmission Date: 20150821
  Serious: Yes (Disabling)
  Sender: FDA-Public Use
  Company Number: GB-ASTRAZENECA-2015SE49610

PATIENT
  Sex: Male
  Weight: 74 kg

DRUGS (6)
  1. ZOLADEX [Suspect]
     Active Substance: GOSERELIN ACETATE
     Indication: PROSTATE CANCER
     Route: 058
     Dates: start: 2013, end: 2013
  2. TIMOLOL [Concomitant]
     Active Substance: TIMOLOL
     Dosage: AS DIRECTED BY CONSULTANT
     Route: 050
  3. DORZOLAMIDE [Concomitant]
     Active Substance: DORZOLAMIDE
     Dosage: AS DIRECTED BY CONSULTANT
     Route: 050
  4. TAMSULOSIN [Concomitant]
     Active Substance: TAMSULOSIN
  5. BRIMONIDINE [Concomitant]
     Active Substance: BRIMONIDINE\BRIMONIDINE TARTRATE
     Dosage: AS DIRECTED BY CONSULTANT
     Route: 050
  6. TIMOLOL [Concomitant]
     Active Substance: TIMOLOL
     Dosage: IN THE MORNING, IN THE LEFT EYE
     Route: 050

REACTIONS (1)
  - Peripheral swelling [Recovered/Resolved]

NARRATIVE: CASE EVENT DATE: 2013
